FAERS Safety Report 21293322 (Version 2)
Quarter: 2022Q3

REPORT INFORMATION
  Report Type: Report from Study
  Country: GR (occurrence: None)
  Receive Date: 20220905
  Receipt Date: 20220907
  Transmission Date: 20221027
  Serious: Yes (Other)
  Sender: FDA-Public Use
  Company Number: GR-ROCHE-3167631

PATIENT
  Age: 74 Year
  Sex: Male
  Weight: 70 kg

DRUGS (8)
  1. ATEZOLIZUMAB [Suspect]
     Active Substance: ATEZOLIZUMAB
     Indication: Hepatocellular carcinoma
     Dosage: ON 04/AUG/2022 MOST RECENT DOSE OF STUDY DRUG PRIOR TO AE (1200 MG)
     Route: 041
     Dates: start: 20220714
  2. SORAFENIB [Suspect]
     Active Substance: SORAFENIB
     Indication: Hepatocellular carcinoma
     Dosage: ON 04/AUG/2022 AND 22/AUG/2022, MOST RECENT DOSE OF STUDY DRUG PRIOR TO SAE?END DATE OF MOST RECENT
     Route: 048
     Dates: start: 20220714
  3. ASPIRIN [Concomitant]
     Active Substance: ASPIRIN
     Route: 048
  4. RAMIPRIL [Concomitant]
     Active Substance: RAMIPRIL
     Route: 048
  5. AMLODIPINE [Concomitant]
     Active Substance: AMLODIPINE BESYLATE
     Route: 048
  6. CARVEDILOL [Concomitant]
     Active Substance: CARVEDILOL
  7. EZETIMIBE [Concomitant]
     Active Substance: EZETIMIBE
     Route: 048
  8. ENTECAVIR [Concomitant]
     Active Substance: ENTECAVIR
     Route: 048

REACTIONS (1)
  - Diarrhoea [Recovered/Resolved]

NARRATIVE: CASE EVENT DATE: 20220714
